FAERS Safety Report 10932750 (Version 1)
Quarter: 2015Q1

REPORT INFORMATION
  Report Type: Spontaneous
  Country: US (occurrence: None)
  Receive Date: 20150318
  Receipt Date: 20150318
  Transmission Date: 20150721
  Serious: No
  Sender: FDA-Public Use
  Company Number: 1210513-2015-00102

PATIENT
  Sex: Male

DRUGS (1)
  1. SHEFFIELD TRIPLE ANTIBIOTIC [Suspect]
     Active Substance: BACITRACIN ZINC\NEOMYCIN SULFATE\POLYMYXIN B SULFATE
     Indication: ANTIBIOTIC THERAPY
     Route: 061

REACTIONS (1)
  - Oral disorder [None]

NARRATIVE: CASE EVENT DATE: 20110909
